FAERS Safety Report 20232730 (Version 3)
Quarter: 2022Q1

REPORT INFORMATION
  Report Type: Report from Study
  Country: DE (occurrence: DE)
  Receive Date: 20211227
  Receipt Date: 20220106
  Transmission Date: 20220423
  Serious: Yes (Hospitalization)
  Sender: FDA-Public Use
  Company Number: DE-CELGENE-DEU-20211205971

PATIENT
  Age: 50 Year
  Sex: Male

DRUGS (7)
  1. ABRAXANE [Suspect]
     Active Substance: PACLITAXEL
     Indication: Ductal adenocarcinoma of pancreas
     Dosage: 100 MILLIGRAM
     Route: 041
     Dates: start: 20210813, end: 20211102
  2. GEMCITABINE [Suspect]
     Active Substance: GEMCITABINE
     Indication: Ductal adenocarcinoma of pancreas
     Dosage: 800 MILLIGRAM
     Route: 041
     Dates: start: 20210823, end: 20211102
  3. ROMIDEPSIN [Suspect]
     Active Substance: ROMIDEPSIN
     Indication: Ductal adenocarcinoma of pancreas
     Dosage: 2 MILLIGRAM
     Route: 041
     Dates: start: 20210828, end: 20211026
  4. AZACITIDINE [Suspect]
     Active Substance: AZACITIDINE
     Indication: Ductal adenocarcinoma of pancreas
     Dosage: 30 MILLIGRAM
     Route: 058
     Dates: start: 20210816, end: 20211015
  5. COTRIMOXAZOLE [Concomitant]
     Active Substance: SULFAMETHOXAZOLE\TRIMETHOPRIM
     Indication: Pneumonia
     Dosage: 3840 MILLIGRAM
     Route: 048
     Dates: start: 20211208
  6. PREDNISOLONE [Concomitant]
     Active Substance: PREDNISOLONE
     Indication: Supportive care
     Dosage: 20 MILLIGRAM
     Route: 048
     Dates: start: 20211208
  7. AMOXICILLIN\CLAVULANATE POTASSIUM [Concomitant]
     Active Substance: AMOXICILLIN\CLAVULANATE POTASSIUM
     Indication: Pneumonia
     Dosage: 875/125
     Route: 048
     Dates: start: 20211201, end: 20211206

REACTIONS (1)
  - Pneumocystis jirovecii pneumonia [Recovered/Resolved]

NARRATIVE: CASE EVENT DATE: 20211122
